FAERS Safety Report 6585878-8 (Version None)
Quarter: 2010Q1

REPORT INFORMATION
  Report Type: 
  Country: None (occurrence: None)
  Receive Date: 20100217
  Receipt Date: 20100205
  Transmission Date: 20100710
  Serious: Yes (Hospitalization, Other)
  Sender: FDA-Public Use
  Company Number: PHEH2007US11023

PATIENT
  Sex: Male

DRUGS (36)
  1. ZOMETA [Suspect]
     Indication: MULTIPLE MYELOMA
     Dosage: 4MG
     Route: 042
     Dates: end: 20090201
  2. AREDIA [Suspect]
     Dosage: UNK
     Dates: end: 20050909
  3. THALIDOMIDE [Concomitant]
  4. CALCIUM WITH VITAMIN D [Concomitant]
  5. STEROIDS NOS [Concomitant]
  6. ARANESP [Concomitant]
  7. DEXAMETHASONE [Concomitant]
  8. ACETAMINOPHEN [Concomitant]
     Dosage: UNK
  9. LISINOPRIL [Concomitant]
  10. MAGNESIUM CITRATE [Concomitant]
  11. GATIFLOXACIN [Concomitant]
  12. OXYCODONE HYDROCHLORIDE W/PARACETAMOL [Concomitant]
  13. DOCUSATE [Concomitant]
  14. LACTULOSE [Concomitant]
  15. FLUOCINOLONE ACETONIDE [Concomitant]
  16. GABAPENTIN [Concomitant]
  17. SENNOSIDE [Concomitant]
  18. DECADRON                                /CAN/ [Concomitant]
  19. ZANTAC [Concomitant]
  20. COLACE [Concomitant]
  21. SENNA [Concomitant]
  22. COUMADIN [Concomitant]
  23. GLUCOSAMINE SULFATE W/CHONDROITIN [Concomitant]
  24. FOLIC ACID [Concomitant]
  25. FOSINOPRIL SODIUM [Concomitant]
     Dosage: 40 MG BY MOUTH DAILY IN THE MORINING
  26. CELEXA [Concomitant]
     Dosage: UNK
  27. AUGMENTIN                               /SCH/ [Concomitant]
  28. CELEBREX [Concomitant]
     Dosage: 200 MG DAILY
  29. PROCRIT                            /00909301/ [Concomitant]
     Dosage: 40 K EACH WEEK
  30. CHLORHEXIDINE ^CCS^ [Concomitant]
     Dosage: UNK
  31. ACETYLSALICYLIC ACID [Concomitant]
  32. CITALOPRAM HYDROBROMIDE [Concomitant]
  33. PEPCID [Concomitant]
  34. MAALOX                                  /NET/ [Concomitant]
  35. WARFARIN SODIUM [Concomitant]
  36. CEPHALEXIN [Concomitant]

REACTIONS (56)
  - ANAEMIA [None]
  - ANXIETY [None]
  - BACK INJURY [None]
  - BACK PAIN [None]
  - BONE DENSITY DECREASED [None]
  - BONE DISORDER [None]
  - BONE LESION [None]
  - BUNDLE BRANCH BLOCK RIGHT [None]
  - BURSITIS [None]
  - CANDIDIASIS [None]
  - CATARACT [None]
  - COAGULOPATHY [None]
  - DECREASED INTEREST [None]
  - DEFORMITY [None]
  - DIARRHOEA [None]
  - ELECTROCARDIOGRAM QRS COMPLEX PROLONGED [None]
  - EMOTIONAL DISTRESS [None]
  - ESSENTIAL HYPERTENSION [None]
  - EXOSTOSIS [None]
  - GASTROOESOPHAGEAL REFLUX DISEASE [None]
  - GINGIVITIS [None]
  - HIATUS HERNIA [None]
  - HYPERHIDROSIS [None]
  - HYPERLIPIDAEMIA [None]
  - HYPOAESTHESIA [None]
  - HYPOPHAGIA [None]
  - INFECTION [None]
  - JOINT STIFFNESS [None]
  - LEFT VENTRICULAR HYPERTROPHY [None]
  - LIFE EXPECTANCY SHORTENED [None]
  - MERALGIA PARAESTHETICA [None]
  - MITRAL VALVE PROLAPSE [None]
  - MUSCULOSKELETAL DISCOMFORT [None]
  - NEURALGIA [None]
  - ORAL PAIN [None]
  - OSTEOARTHRITIS [None]
  - OSTEONECROSIS [None]
  - OSTEOSCLEROSIS [None]
  - OTITIS EXTERNA [None]
  - OVERDOSE [None]
  - PAIN [None]
  - PAIN IN EXTREMITY [None]
  - PAIN IN JAW [None]
  - PLANTAR FASCIITIS [None]
  - POLLAKIURIA [None]
  - PYREXIA [None]
  - SEBORRHOEIC DERMATITIS [None]
  - SINUS ARRHYTHMIA [None]
  - SINUS BRADYCARDIA [None]
  - SPINAL FRACTURE [None]
  - STOMATITIS [None]
  - SWELLING [None]
  - TOOTH EXTRACTION [None]
  - TOOTH INFECTION [None]
  - VERTEBROPLASTY [None]
  - WHEEZING [None]
